FAERS Safety Report 10079546 (Version 2)
Quarter: 2014Q2

REPORT INFORMATION
  Report Type: Spontaneous
  Country: US (occurrence: US)
  Receive Date: 20140415
  Receipt Date: 20140616
  Transmission Date: 20141212
  Serious: Yes (Hospitalization)
  Sender: FDA-Public Use
  Company Number: US-BAYER-2014-054614

PATIENT
  Age: 43 Year
  Sex: Female
  Weight: 51 kg

DRUGS (12)
  1. OCELLA [Suspect]
  2. CYCLOBENZAPRINE [Concomitant]
     Dosage: 10 MG, UNK
  3. ACYCLOVIR [ACICLOVIR] [Concomitant]
     Dosage: 400 MG, UNK
  4. TOPIRAMATE [Concomitant]
     Dosage: 50 MG, UNK
  5. SIMVASTATIN [Concomitant]
     Dosage: 20 MG, UNK
  6. LAMICTAL [Concomitant]
     Indication: CONVULSION
     Dosage: 100 MG, HS
     Route: 048
     Dates: start: 20070120, end: 20140215
  7. LUNESTA [Concomitant]
     Dosage: 3 MG, HS
     Route: 048
     Dates: start: 20070129, end: 20100726
  8. MINOCYCLINE [Concomitant]
     Dosage: 100 MG, HS
     Route: 048
     Dates: start: 20070129, end: 20101022
  9. VITAMIN D [Concomitant]
     Dosage: 50,000 UNITS Q ( EVERY) WEEK
     Route: 048
     Dates: start: 20081124, end: 20140207
  10. VALERIAN EXTRACT [Concomitant]
     Dosage: UNK
     Route: 048
     Dates: start: 20100115
  11. CLONAZEPAM [Concomitant]
     Indication: CONVULSION
     Dosage: 1 MG, HS
     Route: 048
  12. VALERIN [Concomitant]

REACTIONS (2)
  - Pulmonary embolism [Recovered/Resolved]
  - Deep vein thrombosis [Recovered/Resolved]
